FAERS Safety Report 23564375 (Version 1)
Quarter: 2024Q1

REPORT INFORMATION
  Report Type: Spontaneous
  Country: US (occurrence: US)
  Receive Date: 20240226
  Receipt Date: 20240226
  Transmission Date: 20240410
  Serious: Yes (Death, Other)
  Sender: FDA-Public Use
  Company Number: US-SPECGX-T202400635

PATIENT
  Age: 23 Year
  Sex: Male

DRUGS (3)
  1. OXYCODONE [Suspect]
     Active Substance: OXYCODONE\OXYCODONE HYDROCHLORIDE
     Indication: Product used for unknown indication
     Dosage: UNK
     Route: 065
  2. COCAINE [Suspect]
     Active Substance: COCAINE
     Indication: Product used for unknown indication
     Dosage: UNK
     Route: 065
  3. ACETAMINOPHEN [Suspect]
     Active Substance: ACETAMINOPHEN
     Indication: Product used for unknown indication
     Dosage: UNK
     Route: 065

REACTIONS (17)
  - Brain death [Fatal]
  - Toxicity to various agents [Fatal]
  - Acute kidney injury [Unknown]
  - Hepatotoxicity [Unknown]
  - Electrocardiogram QT prolonged [Unknown]
  - Resuscitation [Unknown]
  - Endotracheal intubation [Unknown]
  - Haemofiltration [Unknown]
  - Cardiac arrest [Unknown]
  - Respiratory depression [Unknown]
  - Bradycardia [Unknown]
  - Depressed level of consciousness [Unknown]
  - Coma [Unknown]
  - Leukocytosis [Unknown]
  - Hypertension [Unknown]
  - Metabolic acidosis [Unknown]
  - Hyperthermia [Unknown]
